FAERS Safety Report 9582642 (Version 1)
Quarter: 2013Q4

REPORT INFORMATION
  Report Type: Spontaneous
  Country: US (occurrence: US)
  Receive Date: 20131002
  Receipt Date: 20131002
  Transmission Date: 20140711
  Serious: No
  Sender: FDA-Public Use
  Company Number: US-AMGEN-USASP2013041839

PATIENT
  Age: 51 Year
  Sex: Female
  Weight: 58.96 kg

DRUGS (6)
  1. ENBREL [Suspect]
     Indication: PRODUCT USED FOR UNKNOWN INDICATION
     Dosage: 50 MG/ML, QWK
     Route: 065
  2. METHOTREXATE [Concomitant]
     Dosage: 2.5 MG, UNK
  3. PREDNISONE [Concomitant]
     Dosage: 1 MG, UNK
  4. SYNTHROID [Concomitant]
     Dosage: 25 MUG, UNK
  5. ALPRAZOLAM [Concomitant]
     Dosage: 0.25 MG, UNK
  6. FOLIC ACID [Concomitant]
     Dosage: UNK

REACTIONS (2)
  - Feeling abnormal [Unknown]
  - Injection site pain [Unknown]
